FAERS Safety Report 19451852 (Version 1)
Quarter: 2021Q2

REPORT INFORMATION
  Report Type: Spontaneous
  Country: DE (occurrence: DE)
  Receive Date: 20210623
  Receipt Date: 20210623
  Transmission Date: 20210717
  Serious: Yes (Other)
  Sender: FDA-Public Use
  Company Number: DE-AUROBINDO-AUR-APL-2021-025813

PATIENT
  Sex: Male

DRUGS (1)
  1. EMTRICITABIN+TENOFOVIR DISOPROXIL FILM COATED TABLETS [Suspect]
     Active Substance: EMTRICITABINE\TENOFOVIR DISOPROXIL
     Indication: PRODUCT USED FOR UNKNOWN INDICATION
     Dosage: UNK
     Route: 065

REACTIONS (4)
  - Product physical issue [Unknown]
  - Erectile dysfunction [Unknown]
  - Acne [Unknown]
  - Headache [Unknown]
